FAERS Safety Report 9193217 (Version 1)
Quarter: 2013Q1

REPORT INFORMATION
  Report Type: Spontaneous
  Country: US (occurrence: None)
  Receive Date: 20130325
  Receipt Date: 20130325
  Transmission Date: 20140127
  Serious: Yes (Hospitalization, Other)
  Sender: FDA-Public Use
  Company Number: None

PATIENT
  Age: 53 Year
  Sex: Male
  Weight: 86.18 kg

DRUGS (1)
  1. TRIMETHOPRIM + SULFAMETHOXAZOLE [Suspect]
     Indication: CELLULITIS
     Dosage: 1 TABLET EVERY 2 HOURS
     Dates: start: 20130306, end: 20130308

REACTIONS (11)
  - Drug dispensing error [None]
  - Incorrect dose administered [None]
  - Overdose [None]
  - Nausea [None]
  - Vomiting [None]
  - Dizziness [None]
  - Headache [None]
  - Rash [None]
  - Pruritus [None]
  - Diarrhoea [None]
  - Bone marrow failure [None]
